FAERS Safety Report 11316774 (Version 1)
Quarter: 2015Q3

REPORT INFORMATION
  Report Type: Spontaneous
  Country: US (occurrence: US)
  Receive Date: 20150728
  Receipt Date: 20150728
  Transmission Date: 20151125
  Serious: No
  Sender: FDA-Public Use
  Company Number: US-PFIZER INC-2015249709

PATIENT
  Age: 25 Year
  Sex: Female

DRUGS (2)
  1. DEPO-PROVERA [Suspect]
     Active Substance: MEDROXYPROGESTERONE ACETATE
     Indication: MENSTRUAL CYCLE MANAGEMENT
     Dosage: 150 MG, EVERY 3 MONTHS (EVERY 12-13 WEEKS)
     Route: 030
  2. DESMOPRESSIN [Concomitant]
     Active Substance: DESMOPRESSIN

REACTIONS (1)
  - Drug ineffective for unapproved indication [Not Recovered/Not Resolved]
